FAERS Safety Report 6185803-8 (Version None)
Quarter: 2009Q2

REPORT INFORMATION
  Report Type: 
  Country: None (occurrence: None)
  Receive Date: 20090511
  Receipt Date: 20090501
  Transmission Date: 20091009
  Serious: Yes (Hospitalization)
  Sender: FDA-Public Use
  Company Number: A0731200A

PATIENT
  Age: 70 Year
  Sex: Female
  Weight: 96.8 kg

DRUGS (5)
  1. AVANDIA [Suspect]
     Indication: TYPE 2 DIABETES MELLITUS
     Dosage: 4MG TWICE PER DAY
     Route: 048
     Dates: start: 20030101, end: 20060401
  2. GLUCOPHAGE [Concomitant]
  3. METFORMIN HCL [Concomitant]
  4. AMARYL [Concomitant]
  5. STARLIX [Concomitant]

REACTIONS (9)
  - ARRHYTHMIA [None]
  - ARTERIOSCLEROSIS [None]
  - ATRIAL FIBRILLATION [None]
  - CARDIAC FAILURE CONGESTIVE [None]
  - CARDIAC FUNCTION DISTURBANCE POSTOPERATIVE [None]
  - MYOCARDIAL ISCHAEMIA [None]
  - PLEURAL EFFUSION [None]
  - POSTOPERATIVE WOUND INFECTION [None]
  - WOUND INFECTION STAPHYLOCOCCAL [None]
